FAERS Safety Report 12958386 (Version 1)
Quarter: 2016Q4

REPORT INFORMATION
  Report Type: Spontaneous
  Country: US (occurrence: US)
  Receive Date: 20161121
  Receipt Date: 20161121
  Transmission Date: 20170207
  Serious: No
  Sender: FDA-Public Use
  Company Number: US-009507513-1611USA007215

PATIENT
  Age: 54 Year
  Sex: Female

DRUGS (4)
  1. AZITHROMYCIN ANHYDROUS. [Concomitant]
     Active Substance: AZITHROMYCIN ANHYDROUS
  2. PREDNISONE. [Concomitant]
     Active Substance: PREDNISONE
  3. ROLAIDS (CALCIUM CARBONATE (+) MAGNESIUM HYDROXIDE) [Concomitant]
  4. ASMANEX [Suspect]
     Active Substance: MOMETASONE FUROATE
     Indication: ASTHMA
     Dosage: UNK
     Route: 055
     Dates: start: 20160706, end: 20160815

REACTIONS (4)
  - Cough [Recovering/Resolving]
  - Mastication disorder [Recovering/Resolving]
  - Choking sensation [Recovering/Resolving]
  - Pharyngeal erythema [Recovering/Resolving]

NARRATIVE: CASE EVENT DATE: 201607
